FAERS Safety Report 6117952-4 (Version None)
Quarter: 2009Q1

REPORT INFORMATION
  Report Type: 
  Country: None (occurrence: None)
  Receive Date: 20090314
  Receipt Date: 20090202
  Transmission Date: 20090719
  Serious: No
  Sender: FDA-Public Use
  Company Number: US-ABBOTT-09P-163-0501556-00

PATIENT
  Sex: Female
  Weight: 77.18 kg

DRUGS (8)
  1. HUMIRA [Suspect]
     Indication: RHEUMATOID ARTHRITIS
     Route: 058
     Dates: start: 20090118
  2. POTASSIUM CHLORIDE [Concomitant]
     Indication: MINERAL SUPPLEMENTATION
     Route: 048
  3. METFORMIN HCL [Concomitant]
     Indication: DIABETES MELLITUS
     Route: 048
  4. DIOVAN [Concomitant]
     Indication: HYPERTENSION
     Route: 048
  5. METOPROLOL TARTRATE [Concomitant]
     Indication: HYPERTENSION
     Route: 048
  6. ASPIRIN [Concomitant]
     Indication: DRUG USE FOR UNKNOWN INDICATION
     Route: 048
  7. VYTORIN [Concomitant]
     Indication: DRUG USE FOR UNKNOWN INDICATION
     Dosage: 10MG/20MG
     Route: 048
  8. LISINOPRIL [Concomitant]
     Indication: HYPERTENSION
     Route: 048

REACTIONS (1)
  - WRONG TECHNIQUE IN DRUG USAGE PROCESS [None]
